FAERS Safety Report 5138704-8 (Version None)
Quarter: 2006Q4

REPORT INFORMATION
  Report Type: 
  Country: None (occurrence: None)
  Receive Date: 20061024
  Receipt Date: 20060823
  Transmission Date: 20070319
  Serious: Yes (Other)
  Sender: FDA-Public Use
  Company Number: AE-806-283

PATIENT
  Age: 61 Year
  Sex: Male

DRUGS (8)
  1. LIDODERM [Suspect]
     Indication: NEUROPATHY PERIPHERAL
     Dosage: 1/2 PATCH, ONCE
  2. PREVEX [Concomitant]
  3. ZOCOR [Concomitant]
  4. SYNTHROID [Concomitant]
  5. COREG [Concomitant]
  6. NEURONTIN [Concomitant]
  7. LANOXIN [Concomitant]
  8. INSULIN POTASSIUM [Concomitant]

REACTIONS (1)
  - BLOOD GLUCOSE INCREASED [None]
